FAERS Safety Report 4542248-1 (Version None)
Quarter: 2004Q4

REPORT INFORMATION
  Report Type: 
  Country: None (occurrence: None)
  Receive Date: 20041227
  Receipt Date: 20041214
  Transmission Date: 20050328
  Serious: Yes (Hospitalization, Other)
  Sender: FDA-Public Use
  Company Number: HQWYE028016DEC04

PATIENT
  Age: 58 Year
  Sex: Female

DRUGS (13)
  1. ZOSYN [Suspect]
     Indication: ABDOMINAL INFECTION
     Dosage: 3.375 G 1X PER 6 HR, INTRAVENOUS
     Route: 042
     Dates: start: 20021206, end: 20021208
  2. AMOXICILLIN AND CLAVULANATE POTASSIUM [Suspect]
     Indication: ABDOMINAL INFECTION
     Dosage: 800 MG 1X PER 12 HR, ORAL
     Route: 048
     Dates: start: 20021210
  3. MORPHINE SULFATE [Concomitant]
  4. ZOFRAN [Concomitant]
  5. BENADRYL [Concomitant]
  6. DILAUDID [Concomitant]
  7. DILAUDID [Concomitant]
  8. PROTONIX [Concomitant]
  9. CIPRO [Concomitant]
  10. POTASSIUM CHLORIDE [Concomitant]
  11. LASIX [Concomitant]
  12. FLAGYL [Concomitant]
  13. LOVENOX [Concomitant]

REACTIONS (6)
  - DEHYDRATION [None]
  - FUNGAL INFECTION [None]
  - INFLUENZA LIKE ILLNESS [None]
  - OEDEMA PERIPHERAL [None]
  - VIRAL INFECTION [None]
  - WOUND INFECTION [None]
